FAERS Safety Report 11769866 (Version 2)
Quarter: 2015Q4

REPORT INFORMATION
  Report Type: Spontaneous
  Country: IN (occurrence: IN)
  Receive Date: 20151123
  Receipt Date: 20151125
  Transmission Date: 20160304
  Serious: Yes (Hospitalization, Other)
  Sender: FDA-Public Use
  Company Number: IN-PFIZER INC-2015389783

PATIENT
  Age: 49 Year
  Sex: Male

DRUGS (3)
  1. RANITIDINE [Interacting]
     Active Substance: RANITIDINE\RANITIDINE HYDROCHLORIDE
     Indication: PROPHYLAXIS
     Dosage: 50 MG, 2X/DAY
  2. PHENYTOIN SODIUM. [Suspect]
     Active Substance: PHENYTOIN SODIUM
     Indication: GENERALISED TONIC-CLONIC SEIZURE
     Dosage: 100 MG, 2X/DAY
  3. DIAZEPAM. [Interacting]
     Active Substance: DIAZEPAM
     Indication: GENERALISED TONIC-CLONIC SEIZURE
     Dosage: 5 MG, 2X/DAY

REACTIONS (4)
  - Toxicity to various agents [Recovering/Resolving]
  - Hypersensitivity [Recovering/Resolving]
  - Drug interaction [Recovering/Resolving]
  - Anticonvulsant drug level increased [Unknown]
